FAERS Safety Report 26065200 (Version 1)
Quarter: 2025Q4

REPORT INFORMATION
  Report Type: Spontaneous
  Country: EU (occurrence: EU)
  Receive Date: 20251119
  Receipt Date: 20251119
  Transmission Date: 20260118
  Serious: Yes (Hospitalization)
  Sender: AMGEN
  Company Number: None

PATIENT
  Age: 60 Year
  Sex: Male

DRUGS (6)
  1. BEVACIZUMAB [Suspect]
     Active Substance: BEVACIZUMAB
     Indication: Lung adenocarcinoma
     Dosage: 660 MILLIGRAM, Q3WK
     Route: 040
     Dates: start: 20251016
  2. ATEZOLIZUMAB [Suspect]
     Active Substance: ATEZOLIZUMAB
     Indication: Lung adenocarcinoma
     Dosage: 1200 MILLIGRAM, Q3WK (AT C1)
     Route: 040
     Dates: start: 20250612
  3. ATEZOLIZUMAB [Suspect]
     Active Substance: ATEZOLIZUMAB
     Dosage: 1850 MILLIGRAM FROM C2 TO C6
     Route: 040
  4. CARBOPLATIN [Suspect]
     Active Substance: CARBOPLATIN
     Indication: Lung adenocarcinoma
     Dosage: 950 MILLIGRAM
     Route: 040
  5. CARBOPLATIN [Suspect]
     Active Substance: CARBOPLATIN
     Dosage: 750 MILLIGRAM, Q3WK
     Route: 040
     Dates: start: 20251016
  6. PEMETREXED [Suspect]
     Active Substance: PEMETREXED
     Indication: Lung adenocarcinoma
     Dosage: 990 MILLIGRAM, Q3WK
     Route: 040
     Dates: start: 20251016

REACTIONS (1)
  - Pancreatitis acute [Recovering/Resolving]

NARRATIVE: CASE EVENT DATE: 20251028
